FAERS Safety Report 7394008-4 (Version None)
Quarter: 2011Q2

REPORT INFORMATION
  Report Type: 
  Country: None (occurrence: None)
  Receive Date: 20110405
  Receipt Date: 20100803
  Transmission Date: 20111010
  Serious: No
  Sender: FDA-Public Use
  Company Number: US-AMGEN-KDL428663

PATIENT
  Sex: Female

DRUGS (24)
  1. PREDNISONE [Concomitant]
     Dosage: UNK UNK, UNK
  2. ACYCLOVIR [Concomitant]
     Dosage: UNK UNK, UNK
  3. L-LYSINE [Concomitant]
     Dosage: UNK UNK, UNK
  4. TRIMETHOPRIM + SULFAMETHOXAZOLE [Concomitant]
     Dosage: UNK UNK, UNK
  5. RITUXIMAB [Concomitant]
     Dosage: UNK UNK, UNK
  6. FOLIC ACID [Concomitant]
     Dosage: UNK UNK, UNK
  7. LORAZEPAM [Concomitant]
     Dosage: UNK UNK, UNK
  8. CYCLOPHOSPHAMIDE [Concomitant]
     Dosage: UNK UNK, UNK
  9. ALLOPURINOL [Concomitant]
     Dosage: UNK UNK, UNK
  10. ASPIRIN [Concomitant]
     Dosage: UNK UNK, UNK
  11. CALCIUM [Concomitant]
     Dosage: UNK UNK, UNK
  12. GINGER [Concomitant]
     Dosage: UNK UNK, UNK
  13. POTASSIUM CHLORIDE [Concomitant]
     Dosage: UNK UNK, UNK
  14. VINCRISTINE SULFATE [Concomitant]
     Dosage: UNK UNK, UNK
  15. ERGOCALCIFEROL [Concomitant]
     Dosage: UNK UNK, UNK
  16. EZETIMIBE [Concomitant]
     Dosage: UNK UNK, UNK
  17. NEULASTA [Suspect]
     Dosage: 4 MG, UNK
     Dates: start: 20100803
  18. UNSPECIFIED NUTRITIONAL SUPPLEMENT [Concomitant]
     Dosage: UNK UNK, UNK
  19. TOPROL-XL [Concomitant]
     Dosage: UNK UNK, UNK
  20. FISH OIL [Concomitant]
     Dosage: UNK UNK, UNK
  21. NEULASTA [Suspect]
     Indication: CHEMOTHERAPY
     Dosage: 6 MG, UNK
     Dates: start: 20100505
  22. ROSUVASTATIN CALCIUM [Concomitant]
     Dosage: UNK UNK, UNK
  23. DICLOFENAC [Concomitant]
     Dosage: UNK UNK, UNK
  24. PROCHLORPERAZINE EDISYLATE [Concomitant]
     Dosage: UNK UNK, UNK

REACTIONS (1)
  - BONE PAIN [None]
